FAERS Safety Report 24148089 (Version 1)
Quarter: 2024Q3

REPORT INFORMATION
  Report Type: Spontaneous
  Country: US (occurrence: US)
  Receive Date: 20240729
  Receipt Date: 20240729
  Transmission Date: 20241016
  Serious: No
  Sender: TEVA
  Company Number: US-TEVA-VS-3225782

PATIENT
  Age: 70 Year
  Sex: Female
  Weight: 99.79 kg

DRUGS (1)
  1. LORAZEPAM [Suspect]
     Active Substance: LORAZEPAM
     Indication: Anxiety
     Route: 048

REACTIONS (1)
  - Drug ineffective [Not Recovered/Not Resolved]
